FAERS Safety Report 20594703 (Version 1)
Quarter: 2022Q1

REPORT INFORMATION
  Report Type: Spontaneous
  Country: US (occurrence: US)
  Receive Date: 20220315
  Receipt Date: 20220315
  Transmission Date: 20220423
  Serious: Yes (Other)
  Sender: FDA-Public Use
  Company Number: US-SA-SAC20220310001285

PATIENT
  Age: 57 Year
  Sex: Female

DRUGS (2)
  1. ZANTAC [Suspect]
     Active Substance: RANITIDINE HYDROCHLORIDE
     Indication: Dyspepsia
     Dosage: 75 MG, QD
     Route: 065
     Dates: start: 201107
  2. ZANTAC [Suspect]
     Active Substance: RANITIDINE HYDROCHLORIDE
     Dosage: 150 MG, QD
     Dates: end: 201401

REACTIONS (6)
  - Uterine cancer [Not Recovered/Not Resolved]
  - Gastric cancer stage II [Not Recovered/Not Resolved]
  - Gastrointestinal carcinoma [Not Recovered/Not Resolved]
  - Cervix carcinoma stage II [Not Recovered/Not Resolved]
  - Gallbladder cancer stage II [Not Recovered/Not Resolved]
  - Thyroid cancer stage II [Not Recovered/Not Resolved]

NARRATIVE: CASE EVENT DATE: 20120101
